FAERS Safety Report 7263016-6 (Version None)
Quarter: 2011Q1

REPORT INFORMATION
  Report Type: 
  Country: None (occurrence: None)
  Receive Date: 20110130
  Receipt Date: 20101014
  Transmission Date: 20110831
  Serious: No
  Sender: FDA-Public Use
  Company Number: US-ABBOTT-10P-163-0678978-00

PATIENT
  Sex: Female
  Weight: 77.18 kg

DRUGS (4)
  1. HUMIRA [Suspect]
     Indication: COLITIS ULCERATIVE
     Dosage: BEGAN TAKING HUMIRA ONCE A MONTH AFTER HER FIRST MONTH ON HUMIRA THERAPY
     Dates: start: 20100701, end: 20101014
  2. HUMIRA [Suspect]
     Indication: CROHN'S DISEASE
     Route: 058
     Dates: start: 20100101, end: 20100701
  3. VENLAFAXINE [Concomitant]
     Indication: DEPRESSION
  4. HUMIRA [Suspect]
     Dates: start: 20101014

REACTIONS (7)
  - MUSCLE SPASMS [None]
  - INAPPROPRIATE SCHEDULE OF DRUG ADMINISTRATION [None]
  - DYSPNOEA [None]
  - ARTHRALGIA [None]
  - JOINT SWELLING [None]
  - PHARYNGEAL OEDEMA [None]
  - MUSCULOSKELETAL CHEST PAIN [None]
